FAERS Safety Report 7369785-9 (Version None)
Quarter: 2011Q1

REPORT INFORMATION
  Report Type: 
  Country: None (occurrence: None)
  Receive Date: 20110323
  Receipt Date: 20110321
  Transmission Date: 20110831
  Serious: Yes (Death)
  Sender: FDA-Public Use
  Company Number: US-GENZYME-CLOF-1001499

PATIENT

DRUGS (4)
  1. CLOLAR [Suspect]
     Indication: ACUTE LEUKAEMIA
     Dosage: UNK
     Route: 042
  2. MELPHALAN [Suspect]
     Indication: BONE MARROW CONDITIONING REGIMEN
     Dosage: UNK
     Route: 065
  3. CLOLAR [Suspect]
     Indication: BONE MARROW CONDITIONING REGIMEN
  4. CAMPATH [Suspect]
     Indication: BONE MARROW CONDITIONING REGIMEN
     Dosage: UNK
     Route: 042

REACTIONS (2)
  - PNEUMONIA [None]
  - ACUTE RESPIRATORY DISTRESS SYNDROME [None]
